FAERS Safety Report 18971265 (Version 2)
Quarter: 2021Q1

REPORT INFORMATION
  Report Type: Spontaneous
  Country: GB (occurrence: GB)
  Receive Date: 20210305
  Receipt Date: 20210326
  Transmission Date: 20210420
  Serious: Yes (Other)
  Sender: FDA-Public Use
  Company Number: GB-SUN PHARMACEUTICAL INDUSTRIES LTD-2021RR-284283

PATIENT
  Age: 61 Year
  Sex: Female
  Weight: 85.27 kg

DRUGS (4)
  1. LANSOPRAZOLE. [Suspect]
     Active Substance: LANSOPRAZOLE
     Indication: ILL-DEFINED DISORDER
     Dosage: 30MG, UNK
     Route: 048
     Dates: start: 20210203, end: 20210205
  2. OMEPRAZOLE. [Suspect]
     Active Substance: OMEPRAZOLE
     Indication: ILL-DEFINED DISORDER
     Dosage: 20MG, UNK
     Route: 048
     Dates: start: 20210206, end: 20210211
  3. LANSOPRAZOLE. [Suspect]
     Active Substance: LANSOPRAZOLE
     Indication: ILL-DEFINED DISORDER
     Dosage: UNK
     Route: 048
  4. CANDESARTAN CILEXETIL. [Concomitant]
     Active Substance: CANDESARTAN CILEXETIL
     Indication: ILL-DEFINED DISORDER
     Dosage: UNK
     Route: 065

REACTIONS (4)
  - Nausea [Unknown]
  - Decreased appetite [Unknown]
  - Adverse drug reaction [Recovered/Resolved with Sequelae]
  - Bowel movement irregularity [Recovered/Resolved with Sequelae]

NARRATIVE: CASE EVENT DATE: 20210203
